FAERS Safety Report 4517953-3 (Version None)
Quarter: 2004Q4

REPORT INFORMATION
  Report Type: 
  Country: None (occurrence: None)
  Receive Date: 20041130
  Receipt Date: 20041116
  Transmission Date: 20050328
  Serious: Yes (Other)
  Sender: FDA-Public Use
  Company Number: B0357468A

PATIENT
  Age: 24 Month
  Sex: Female

DRUGS (2)
  1. FLOVENT [Suspect]
     Indication: ASTHMA
     Dosage: PER DAY INHALED
  2. PREDNISOLONE [Concomitant]

REACTIONS (5)
  - ADRENAL INSUFFICIENCY [None]
  - BLOOD ELECTROLYTES ABNORMAL [None]
  - CONVULSION [None]
  - PYREXIA [None]
  - VOMITING [None]
